FAERS Safety Report 7765242-6 (Version None)
Quarter: 2011Q3

REPORT INFORMATION
  Report Type: 
  Country: None (occurrence: None)
  Receive Date: 20110921
  Receipt Date: 20110913
  Transmission Date: 20111222
  Serious: Yes (Hospitalization)
  Sender: FDA-Public Use
  Company Number: JP-GLAXOSMITHKLINE-B0685204A

PATIENT
  Sex: Male

DRUGS (4)
  1. BEROTEC [Concomitant]
     Dosage: .1MG PER DAY
     Route: 055
  2. FLUTICASONE PROPIONATE/SALMETEROL [Suspect]
     Indication: ASTHMA
     Dosage: 500MCG PER DAY
     Route: 055
     Dates: start: 20080716
  3. THEOLONG [Concomitant]
     Indication: ASTHMA
     Dosage: 400MG PER DAY
     Route: 048
  4. SPIRIVA [Concomitant]
     Indication: CHRONIC OBSTRUCTIVE PULMONARY DISEASE
     Dosage: 18MCG PER DAY
     Route: 055

REACTIONS (1)
  - ASTHMA [None]
